FAERS Safety Report 6199532-8 (Version None)
Quarter: 2009Q2

REPORT INFORMATION
  Report Type: 
  Country: None (occurrence: None)
  Receive Date: 20090522
  Receipt Date: 20090515
  Transmission Date: 20091009
  Serious: Yes (Death, Hospitalization)
  Sender: FDA-Public Use
  Company Number: A0779178A

PATIENT
  Age: 56 Year
  Sex: Female

DRUGS (10)
  1. ADVAIR HFA [Suspect]
     Indication: DRUG USE FOR UNKNOWN INDICATION
     Route: 055
  2. LEXAPRO [Concomitant]
  3. PROTONIX [Concomitant]
  4. NORVASC [Concomitant]
  5. K DUR [Concomitant]
  6. ALDACTONE [Concomitant]
  7. SPIRIVA [Concomitant]
  8. PROVENTIL [Concomitant]
  9. ANTIVERT [Concomitant]
  10. UNKNOWN [Concomitant]

REACTIONS (1)
  - DEATH [None]
